FAERS Safety Report 24190491 (Version 1)
Quarter: 2024Q3

REPORT INFORMATION
  Report Type: Spontaneous
  Country: US (occurrence: US)
  Receive Date: 20240808
  Receipt Date: 20240808
  Transmission Date: 20241016
  Serious: Yes (Death, Hospitalization)
  Sender: JOHNSON AND JOHNSON
  Company Number: US-JNJFOC-20240804574

PATIENT
  Age: 44 Year
  Sex: Female

DRUGS (2)
  1. ACETAMINOPHEN [Interacting]
     Active Substance: ACETAMINOPHEN
     Indication: Product used for unknown indication
     Dosage: 325 MG (1.3 GRAMS TOTAL)?6 DOSAGE FORMS 325 MG (1.3 GRAMS TOTAL)
     Route: 048
  2. IBUPROFEN [Concomitant]
     Active Substance: IBUPROFEN
     Indication: Product used for unknown indication
     Dosage: 800 MG TOTAL
     Route: 048

REACTIONS (10)
  - Acute hepatic failure [Fatal]
  - Hypotension [Fatal]
  - Blood lactic acid increased [Fatal]
  - Ammonia increased [Fatal]
  - Blood creatinine increased [Fatal]
  - Brain death [Fatal]
  - Intracranial pressure increased [Fatal]
  - Brain herniation [Fatal]
  - Areflexia [Fatal]
  - Drug interaction [Fatal]
